FAERS Safety Report 9227945 (Version 2)
Quarter: 2013Q3

REPORT INFORMATION
  Report Type: Report from Study
  Country: BR (occurrence: BR)
  Receive Date: 20130412
  Receipt Date: 20130722
  Transmission Date: 20140515
  Serious: No
  Sender: FDA-Public Use
  Company Number: BR-ROCHE-1155012

PATIENT
  Sex: Female
  Weight: 55 kg

DRUGS (7)
  1. MABTHERA [Suspect]
     Indication: RHEUMATOID ARTHRITIS
     Route: 065
     Dates: start: 20110325, end: 201104
  2. MABTHERA [Suspect]
     Indication: SYSTEMIC LUPUS ERYTHEMATOSUS
     Route: 065
     Dates: start: 201110
  3. PREDSIM [Concomitant]
     Route: 065
  4. HYDROXYCHLOROQUINE [Concomitant]
     Route: 065
  5. FAMOTIDINE [Concomitant]
     Route: 065
  6. NIMESULIDE [Concomitant]
  7. TYLENOL [Concomitant]

REACTIONS (5)
  - Arthralgia [Not Recovered/Not Resolved]
  - Sinusitis [Unknown]
  - Cystitis [Recovered/Resolved]
  - Glaucoma [Recovered/Resolved]
  - Dry eye [Not Recovered/Not Resolved]
